FAERS Safety Report 20777329 (Version 2)
Quarter: 2022Q4

REPORT INFORMATION
  Report Type: Other
  Country: ES (occurrence: None)
  Receive Date: 20220503
  Receipt Date: 20221214
  Transmission Date: 20230113
  Serious: Yes (Hospitalization)
  Sender: FDA-Public Use
  Company Number: ES-ROCHE-3088871

PATIENT
  Age: 39 Year
  Sex: Male
  Weight: 80 kg

DRUGS (5)
  1. OCRELIZUMAB [Suspect]
     Active Substance: OCRELIZUMAB
     Indication: Relapsing-remitting multiple sclerosis
     Dosage: DOSE LAST STUDY DRUG ADMIN PRIOR AE/SAE: 600MG, START DATE OF MOST RECENT DOSE OF STUDY DRUG PRIOR T
     Route: 042
     Dates: start: 20200428, end: 20200428
  2. OCRELIZUMAB [Suspect]
     Active Substance: OCRELIZUMAB
     Dosage: SUBSEQUENT DOSES ON : 20/MAY/2021, 14/DEC/2021, 16/JUN/2022
     Route: 042
     Dates: start: 20201112, end: 20201112
  3. INTERFERON BETA-1A [Concomitant]
     Active Substance: INTERFERON BETA-1A
     Dates: start: 20090219
  4. ARIPIPRAZOLE [Concomitant]
     Active Substance: ARIPIPRAZOLE
     Route: 048
     Dates: start: 20170907
  5. SIMVASTATIN [Concomitant]
     Active Substance: SIMVASTATIN
     Route: 048

REACTIONS (1)
  - COVID-19 [Recovered/Resolved]

NARRATIVE: CASE EVENT DATE: 20210711
